FAERS Safety Report 5628144-7 (Version None)
Quarter: 2008Q1

REPORT INFORMATION
  Report Type: 
  Country: None (occurrence: None)
  Receive Date: 20080215
  Receipt Date: 20080206
  Transmission Date: 20080703
  Serious: No
  Sender: FDA-Public Use
  Company Number: FR-ELI_LILLY_AND_COMPANY-FR200710002679

PATIENT
  Age: 80 Year
  Sex: Female
  Weight: 54.5 kg

DRUGS (3)
  1. GEMZAR [Suspect]
     Indication: PANCREATIC CARCINOMA METASTATIC
     Dosage: UNK, WEEKLY (1/W)
     Route: 042
     Dates: start: 20070830, end: 20071025
  2. EPOGEN [Concomitant]
     Indication: ANAEMIA
     Route: 065
  3. LOVENOX [Concomitant]
     Dosage: UNK, UNKNOWN
     Route: 058

REACTIONS (1)
  - OEDEMA PERIPHERAL [None]
